FAERS Safety Report 17127572 (Version 1)
Quarter: 2019Q4

REPORT INFORMATION
  Report Type: Spontaneous
  Country: US (occurrence: US)
  Receive Date: 20191206
  Receipt Date: 20191206
  Transmission Date: 20200122
  Serious: Yes (Hospitalization)
  Sender: FDA-Public Use
  Company Number: None

PATIENT
  Age: 15 Year
  Sex: Male

DRUGS (3)
  1. PULMOZYME [Suspect]
     Active Substance: DORNASE ALFA
     Indication: RESPIRATORY DISORDER
     Route: 055
     Dates: start: 20181114
  2. LINZESS, CETIRIZINE, POLYETHEL GLYCOL, OMEPRAZOLE, FLUDROCORT [Concomitant]
  3. PREGABALIN, PERTZYE, PULMICORT, DEKAS, CULTURELLE, AMITRIPTYLIN [Concomitant]

REACTIONS (2)
  - Pyrexia [None]
  - Device breakage [None]

NARRATIVE: CASE EVENT DATE: 20191203
